FAERS Safety Report 9064052 (Version 1)
Quarter: 2013Q1

REPORT INFORMATION
  Report Type: Report from Study
  Country: US (occurrence: US)
  Receive Date: 20130130
  Receipt Date: 20130130
  Transmission Date: 20140127
  Serious: No
  Sender: FDA-Public Use
  Company Number: US-ABBOTT-12P-163-0949379-00

PATIENT
  Age: 54 Year
  Sex: Female

DRUGS (8)
  1. HUMIRA 40 MG/0.8 ML PEN [Suspect]
     Indication: PSORIATIC ARTHROPATHY
     Route: 058
     Dates: start: 201202
  2. CHANTIX [Suspect]
     Indication: EX-TOBACCO USER
  3. LOSARTAN HCT [Concomitant]
     Indication: HYPERTENSION
     Dosage: 12MG EVERY DAY
     Route: 048
  4. METOPROLOL [Concomitant]
     Indication: HYPERTENSION
     Dosage: 1.5-15MG EVERY DAY
  5. PRILOSEC [Concomitant]
     Indication: GASTROOESOPHAGEAL REFLUX DISEASE
  6. WELLBUTRIN [Concomitant]
     Indication: STRESS
  7. WELLBUTRIN [Concomitant]
     Indication: SMOKING CESSATION THERAPY
  8. FLEXERIL [Concomitant]
     Indication: PAIN
     Dosage: BUT SAYS SHE TAKES ONLY 1-5MG TAB PER DAY

REACTIONS (3)
  - Skin disorder [Recovering/Resolving]
  - Stress [Unknown]
  - Psoriasis [None]
